FAERS Safety Report 10565318 (Version 1)
Quarter: 2014Q4

REPORT INFORMATION
  Report Type: Spontaneous
  Country: US (occurrence: None)
  Receive Date: 20141103
  Receipt Date: 20141103
  Transmission Date: 20150529
  Serious: Yes (Death, Hospitalization)
  Sender: FDA-Public Use
  Company Number: 2597898

PATIENT
  Age: 80 Year
  Sex: Male

DRUGS (3)
  1. OXYGEN. [Suspect]
     Active Substance: OXYGEN
     Indication: DYSPNOEA
     Route: 045
  2. AMIODARONE [Suspect]
     Active Substance: AMIODARONE
     Indication: ATRIAL FIBRILLATION
     Dosage: NOT REPORTES, (NOT OTHERWISE SPECIFIED)
     Route: 042
  3. AMIODARONE [Suspect]
     Active Substance: AMIODARONE
     Indication: ATRIAL FIBRILLATION
     Route: 048

REACTIONS (6)
  - Cough [None]
  - Hypoxia [None]
  - Dyspnoea [None]
  - Leukocytosis [None]
  - Pulmonary toxicity [None]
  - Syncope [None]
